FAERS Safety Report 19743754 (Version 1)
Quarter: 2021Q3

REPORT INFORMATION
  Report Type: Spontaneous
  Country: JP (occurrence: JP)
  Receive Date: 20210824
  Receipt Date: 20210824
  Transmission Date: 20211014
  Serious: Yes (Other)
  Sender: FDA-Public Use
  Company Number: JP-SETONPHARMA-2021SETLIT00032

PATIENT
  Age: 39 Year
  Sex: Male

DRUGS (7)
  1. LOXOPROFEN [Suspect]
     Active Substance: LOXOPROFEN
     Indication: GOUTY ARTHRITIS
  2. COLCHICINE. [Suspect]
     Active Substance: COLCHICINE
     Indication: GOUTY ARTHRITIS
  3. LOXOPROFEN [Suspect]
     Active Substance: LOXOPROFEN
     Dosage: TAPERED
  4. PREDNISOLONE. [Suspect]
     Active Substance: PREDNISOLONE
     Indication: GOUT
  5. SALAZOSULFAPYRIDINE [Interacting]
     Active Substance: SULFASALAZINE
     Indication: ARTHRITIS REACTIVE
  6. COLCHICINE. [Suspect]
     Active Substance: COLCHICINE
     Dosage: TAPERED
  7. ADALIMUMAB [Interacting]
     Active Substance: ADALIMUMAB
     Indication: ARTHRITIS REACTIVE

REACTIONS (6)
  - Arthritis reactive [Recovering/Resolving]
  - Drug resistance [Unknown]
  - Condition aggravated [Recovering/Resolving]
  - Polyarthritis [Recovering/Resolving]
  - Chlamydial infection [Recovering/Resolving]
  - Iridocyclitis [Recovered/Resolved]
